FAERS Safety Report 20962834 (Version 1)
Quarter: 2022Q2

REPORT INFORMATION
  Report Type: Spontaneous
  Country: US (occurrence: US)
  Receive Date: 20220615
  Receipt Date: 20220615
  Transmission Date: 20220720
  Serious: No
  Sender: FDA-Public Use
  Company Number: PR-BIOVITRUM-2022PR04175

PATIENT
  Sex: Male

DRUGS (1)
  1. SYNAGIS [Suspect]
     Active Substance: PALIVIZUMAB
     Indication: Premature baby
     Dosage: 52.800 (UNIT NOT SPECIFIED)
     Route: 030
     Dates: start: 20220225

REACTIONS (1)
  - Nasal congestion [Unknown]
